FAERS Safety Report 4539627-5 (Version None)
Quarter: 2004Q4

REPORT INFORMATION
  Report Type: 
  Country: None (occurrence: None)
  Receive Date: 20041223
  Receipt Date: 20020729
  Transmission Date: 20050328
  Serious: Yes (Hospitalization)
  Sender: FDA-Public Use
  Company Number: F01200403903

PATIENT
  Age: 89 Year
  Sex: Female

DRUGS (4)
  1. ISCOVER - (CLOPIDOGREL SULFATE) - FORM : UNKNOWN - UNIT DOSE : UNKNOWN [Suspect]
     Indication: ATRIAL FIBRILLATION
     Dosage: 300 MG / 75 MG
     Route: 048
     Dates: start: 20020429, end: 20020429
  2. ISCOVER - (CLOPIDOGREL SULFATE) - FORM : UNKNOWN - UNIT DOSE : UNKNOWN [Suspect]
     Indication: ATRIAL FIBRILLATION
     Dosage: 300 MG / 75 MG
     Route: 048
     Dates: start: 20020430, end: 20020503
  3. (ACETYLSALICYLIC ACID) - FORM : UNKNOWN - UNIT DOSE : UNKNOWN [Suspect]
     Indication: ATRIAL FIBRILLATION
     Dosage: 300 MG
     Route: 048
     Dates: start: 20020429, end: 20020503
  4. HEPARIN [Concomitant]

REACTIONS (3)
  - EMBOLISM [None]
  - FEMORAL ARTERY OCCLUSION [None]
  - VASCULAR OCCLUSION [None]
